FAERS Safety Report 10622546 (Version 1)
Quarter: 2014Q4

REPORT INFORMATION
  Report Type: Spontaneous
  Country: US (occurrence: None)
  Receive Date: 20141202
  Receipt Date: 20141202
  Transmission Date: 20150529
  Serious: Yes (Hospitalization, Other)
  Sender: FDA-Public Use
  Company Number: None

PATIENT
  Age: 29 Year
  Sex: Male
  Weight: 88.45 kg

DRUGS (5)
  1. SEROQUEL XR [Concomitant]
     Active Substance: QUETIAPINE FUMARATE
  2. MEN^S DAILY MULTIVITAMIN [Concomitant]
  3. AMPHETAMINE SALTS [Suspect]
     Active Substance: AMPHETAMINE ASPARTATE\AMPHETAMINE SULFATE\DEXTROAMPHETAMINE SACCHARATE\DEXTROAMPHETAMINE SULFATE
     Indication: ATTENTION DEFICIT/HYPERACTIVITY DISORDER
     Route: 048
     Dates: start: 20060701
  4. LITHIUM [Concomitant]
     Active Substance: LITHIUM CARBONATE
  5. GABAPENTIN. [Concomitant]
     Active Substance: GABAPENTIN

REACTIONS (3)
  - Nausea [None]
  - Malaise [None]
  - Influenza like illness [None]

NARRATIVE: CASE EVENT DATE: 20141112
